FAERS Safety Report 5627824-7 (Version None)
Quarter: 2008Q1

REPORT INFORMATION
  Report Type: 
  Country: None (occurrence: None)
  Receive Date: 20080214
  Receipt Date: 20080214
  Transmission Date: 20080703
  Serious: Yes (Other)
  Sender: FDA-Public Use
  Company Number: None

PATIENT
  Age: 43 Year
  Sex: Female
  Weight: 53.978 kg

DRUGS (1)
  1. MIRCETTE [Suspect]
     Indication: ENDOMETRIOSIS
     Dosage: 1 DAILY ORAL
     Route: 048
     Dates: start: 20031229

REACTIONS (2)
  - ABDOMINAL DISTENSION [None]
  - HEADACHE [None]
